FAERS Safety Report 12159727 (Version 4)
Quarter: 2016Q3

REPORT INFORMATION
  Report Type: Spontaneous
  Country: US (occurrence: US)
  Receive Date: 20160308
  Receipt Date: 20160907
  Transmission Date: 20161109
  Serious: Yes (Hospitalization, Other)
  Sender: FDA-Public Use
  Company Number: PHEH2016US005481

PATIENT
  Sex: Female
  Weight: 106.58 kg

DRUGS (3)
  1. ZOFRAN [Suspect]
     Active Substance: ONDANSETRON HYDROCHLORIDE
     Indication: PRODUCT USED FOR UNKNOWN INDICATION
     Dosage: UNK
     Route: 048
  2. ZOFRAN [Suspect]
     Active Substance: ONDANSETRON HYDROCHLORIDE
     Indication: PRODUCT USED FOR UNKNOWN INDICATION
     Dosage: UNK
     Route: 042
  3. ZOFRAN [Suspect]
     Active Substance: ONDANSETRON HYDROCHLORIDE
     Indication: VOMITING IN PREGNANCY
     Dosage: 8 MG, BID
     Route: 048
     Dates: start: 20090113

REACTIONS (9)
  - Hydronephrosis [Unknown]
  - Anxiety [Unknown]
  - Emotional distress [Unknown]
  - Anaemia of pregnancy [Unknown]
  - Maternal exposure during pregnancy [Unknown]
  - Flank pain [Unknown]
  - Pain [Unknown]
  - Injury [Unknown]
  - Product use issue [Unknown]
